FAERS Safety Report 17064849 (Version 3)
Quarter: 2020Q3

REPORT INFORMATION
  Report Type: Report from Study
  Country: CO (occurrence: CO)
  Receive Date: 20191122
  Receipt Date: 20200820
  Transmission Date: 20201102
  Serious: Yes (Hospitalization, Other)
  Sender: FDA-Public Use
  Company Number: CO-ACTELION-A-CH2018-180054

PATIENT
  Age: 34 Year
  Sex: Female
  Weight: 55 kg

DRUGS (6)
  1. OPSUMIT [Suspect]
     Active Substance: MACITENTAN
     Dosage: 10 MG, QD
     Route: 048
     Dates: start: 20190327, end: 20190630
  2. OPSUMIT [Suspect]
     Active Substance: MACITENTAN
     Dosage: 10 MG, QD
     Route: 048
     Dates: start: 20190218, end: 20190320
  3. OPSUMIT [Suspect]
     Active Substance: MACITENTAN
     Indication: PULMONARY ARTERIAL HYPERTENSION
     Dosage: 10 MG, QD
     Route: 048
     Dates: start: 20180405, end: 20190121
  4. SILDENAFIL. [Suspect]
     Active Substance: SILDENAFIL
     Indication: PRODUCT USED FOR UNKNOWN INDICATION
     Dosage: 25 MG, TID
     Route: 048
     Dates: start: 20180405, end: 2018
  5. OPSUMIT [Suspect]
     Active Substance: MACITENTAN
     Dosage: 10 MG, QD
     Route: 048
     Dates: start: 20190809, end: 20191015
  6. OPSUMIT [Suspect]
     Active Substance: MACITENTAN
     Dosage: 10 MG, QD
     Route: 048
     Dates: start: 20191108

REACTIONS (30)
  - Insomnia [Not Recovered/Not Resolved]
  - Diarrhoea [Unknown]
  - Pulmonary hypertension [Not Recovered/Not Resolved]
  - Right atrial enlargement [Not Recovered/Not Resolved]
  - Therapy cessation [Unknown]
  - Nasopharyngitis [Not Recovered/Not Resolved]
  - Brain natriuretic peptide increased [Recovering/Resolving]
  - Tricuspid valve incompetence [Not Recovered/Not Resolved]
  - Fatigue [Not Recovered/Not Resolved]
  - Choking [Not Recovered/Not Resolved]
  - Dyspnoea [Not Recovered/Not Resolved]
  - Viral infection [Unknown]
  - Asthma [Recovering/Resolving]
  - Influenza [Recovering/Resolving]
  - Headache [Unknown]
  - Immune system disorder [Not Recovered/Not Resolved]
  - Pain [Not Recovered/Not Resolved]
  - Pyrexia [Unknown]
  - Malaise [Not Recovered/Not Resolved]
  - Skin discolouration [Not Recovered/Not Resolved]
  - Lung disorder [Not Recovered/Not Resolved]
  - Pulmonary valve incompetence [Not Recovered/Not Resolved]
  - Cough [Recovering/Resolving]
  - Tension [Not Recovered/Not Resolved]
  - Dizziness [Not Recovered/Not Resolved]
  - Blood pressure fluctuation [Not Recovered/Not Resolved]
  - Chest pain [Recovering/Resolving]
  - Pulmonary pain [Not Recovered/Not Resolved]
  - Feeling abnormal [Not Recovered/Not Resolved]
  - Product supply issue [Unknown]

NARRATIVE: CASE EVENT DATE: 2018
